FAERS Safety Report 5126394-X (Version None)
Quarter: 2006Q3

REPORT INFORMATION
  Report Type: 
  Country: None (occurrence: None)
  Receive Date: 20060830
  Receipt Date: 20051208
  Transmission Date: 20061208
  Serious: Yes (Hospitalization)
  Sender: FDA-Public Use
  Company Number: 200512658BWH

PATIENT

DRUGS (1)
  1. TRASYLOL [Suspect]
     Dosage: 1 ML, ONCE, INTRAVENOUS
     Route: 042
     Dates: start: 20050101

REACTIONS (3)
  - ANAPHYLACTIC REACTION [None]
  - HYPERSENSITIVITY [None]
  - HYPOTENSION [None]
